FAERS Safety Report 12985550 (Version 2)
Quarter: 2016Q4

REPORT INFORMATION
  Report Type: Spontaneous
  Country: JP (occurrence: JP)
  Receive Date: 20161130
  Receipt Date: 20161202
  Transmission Date: 20170207
  Serious: Yes (Other)
  Sender: FDA-Public Use
  Company Number: JP-ROCHE-1860946

PATIENT
  Sex: Female

DRUGS (3)
  1. HERCEPTIN [Suspect]
     Active Substance: TRASTUZUMAB
     Indication: BREAST CANCER
     Route: 041
  2. KADCYLA [Suspect]
     Active Substance: ADO-TRASTUZUMAB EMTANSINE
     Indication: BREAST CANCER
     Route: 041
  3. PACLITAXEL. [Suspect]
     Active Substance: PACLITAXEL
     Indication: BREAST CANCER
     Dosage: DOSAGE IS UNCERTAIN
     Route: 041

REACTIONS (3)
  - Hypoaesthesia [Unknown]
  - Platelet count decreased [Recovered/Resolved]
  - Metastases to central nervous system [Unknown]

NARRATIVE: CASE EVENT DATE: 20161101
